FAERS Safety Report 11564961 (Version 1)
Quarter: 2015Q3

REPORT INFORMATION
  Report Type: Spontaneous
  Country: US (occurrence: US)
  Receive Date: 20150928
  Receipt Date: 20150928
  Transmission Date: 20151125
  Serious: No
  Sender: FDA-Public Use
  Company Number: US-EXELIXIS-CABO-13002507

PATIENT
  Age: 55 Year
  Sex: Female
  Weight: 64 kg

DRUGS (14)
  1. COMETRIQ [Suspect]
     Active Substance: CABOZANTINIB S-MALATE
     Dosage: UNK DOSE 3 DAYS ON 1 DAY OFF
     Route: 048
     Dates: start: 20150221, end: 2015
  2. AMLODIPINE [Concomitant]
     Active Substance: AMLODIPINE BESYLATE
  3. LISINOPRIL. [Concomitant]
     Active Substance: LISINOPRIL
  4. METFORMIN [Concomitant]
     Active Substance: METFORMIN HYDROCHLORIDE
  5. OSCAL [Concomitant]
     Active Substance: CALCIUM CARBONATE
  6. COMETRIQ [Suspect]
     Active Substance: CABOZANTINIB S-MALATE
     Indication: THYROID CANCER
     Dosage: 140 MG, QD
     Route: 048
     Dates: start: 20130221, end: 20130326
  7. COMETRIQ [Suspect]
     Active Substance: CABOZANTINIB S-MALATE
     Dosage: 20 MG, FOR 4 DAYS THEN 1 DAY OFF
     Route: 048
     Dates: start: 201508
  8. COMETRIQ [Suspect]
     Active Substance: CABOZANTINIB S-MALATE
     Dosage: 20 MG, FOR 4 DAYS THEN 1 DAY OFF
     Route: 048
     Dates: start: 20150615, end: 20150616
  9. COMETRIQ [Suspect]
     Active Substance: CABOZANTINIB S-MALATE
     Dosage: 20 MG, QD
     Route: 048
     Dates: start: 20141024, end: 20141030
  10. COMETRIQ [Suspect]
     Active Substance: CABOZANTINIB S-MALATE
     Dosage: 20 MG, ALTERNATING
     Route: 048
     Dates: start: 20141031, end: 201412
  11. LEVOXYL [Concomitant]
     Active Substance: LEVOTHYROXINE SODIUM
  12. COMETRIQ [Suspect]
     Active Substance: CABOZANTINIB S-MALATE
     Dosage: 40 MG, ALTERNATING
     Route: 048
     Dates: start: 20141031, end: 201412
  13. CALCITROL [Concomitant]
     Active Substance: CALCITRIOL
  14. CENTRUM [Concomitant]
     Active Substance: VITAMINS

REACTIONS (18)
  - Skin sensitisation [Unknown]
  - Pain in jaw [Unknown]
  - Decreased appetite [Recovered/Resolved]
  - Oral pain [Unknown]
  - Fatigue [Recovered/Resolved]
  - Tongue disorder [Unknown]
  - Hepatic enzyme increased [Recovered/Resolved]
  - Constipation [Recovered/Resolved]
  - Blister [Recovered/Resolved]
  - Tooth fracture [Unknown]
  - Blood thyroid stimulating hormone increased [Recovered/Resolved]
  - Ageusia [Recovered/Resolved]
  - Sensitivity of teeth [Unknown]
  - Stomatitis [Recovered/Resolved]
  - Dysgeusia [Recovered/Resolved]
  - Lipids increased [Recovered/Resolved]
  - Hypertension [Recovered/Resolved]
  - Abdominal pain [Recovered/Resolved]

NARRATIVE: CASE EVENT DATE: 201303
